FAERS Safety Report 19822775 (Version 1)
Quarter: 2021Q3

REPORT INFORMATION
  Report Type: Report from Study
  Country: US (occurrence: US)
  Receive Date: 20210913
  Receipt Date: 20210913
  Transmission Date: 20211014
  Serious: Yes (Hospitalization)
  Sender: FDA-Public Use
  Company Number: US-PFIZER INC-202101154622

PATIENT
  Age: 80 Year
  Sex: Female

DRUGS (1)
  1. INLYTA [Suspect]
     Active Substance: AXITINIB
     Dosage: 5 MG, 2X/DAY (EVERY 12 HOURS)

REACTIONS (5)
  - Diverticulitis [Unknown]
  - Gingival bleeding [Unknown]
  - Dry mouth [Unknown]
  - Diarrhoea [Unknown]
  - Large intestinal ulcer [Unknown]
